FAERS Safety Report 24087878 (Version 1)
Quarter: 2024Q3

REPORT INFORMATION
  Report Type: Spontaneous
  Country: US (occurrence: US)
  Receive Date: 20240715
  Receipt Date: 20240715
  Transmission Date: 20241016
  Serious: Yes (Other)
  Sender: ABBVIE
  Company Number: US-ABBVIE-5836703

PATIENT
  Sex: Male
  Weight: 106.59 kg

DRUGS (4)
  1. HUMIRA [Suspect]
     Active Substance: ADALIMUMAB
     Indication: Rheumatoid arthritis
     Dosage: FORM STRENGTH: 40 MG
     Route: 058
     Dates: start: 202404
  2. HUMIRA [Suspect]
     Active Substance: ADALIMUMAB
     Dosage: FORM STRENGTH: 40 MG/START DATE TEXT: AT LEAST 13 YEARS AGO
     Route: 058
     Dates: end: 202402
  3. LODINE [Concomitant]
     Active Substance: ETODOLAC
     Indication: Rheumatoid arthritis
  4. METHOCARBAMOL [Concomitant]
     Active Substance: METHOCARBAMOL
     Indication: Rheumatoid arthritis

REACTIONS (10)
  - Localised infection [Recovered/Resolved]
  - Pain in extremity [Recovered/Resolved]
  - Injection site papule [Recovered/Resolved]
  - Erythema [Recovered/Resolved]
  - Injection site haemorrhage [Recovered/Resolved]
  - Animal bite [Recovered/Resolved]
  - Device issue [Not Recovered/Not Resolved]
  - Peripheral swelling [Recovered/Resolved]
  - Injection site pain [Recovered/Resolved]
  - Product administration interrupted [Not Recovered/Not Resolved]

NARRATIVE: CASE EVENT DATE: 20110101
